FAERS Safety Report 4577457-9 (Version None)
Quarter: 2005Q1

REPORT INFORMATION
  Report Type: 
  Country: None (occurrence: None)
  Receive Date: 20050210
  Receipt Date: 20050207
  Transmission Date: 20050727
  Serious: Yes (Hospitalization)
  Sender: FDA-Public Use
  Company Number: FR-ABBOTT-05P-056-0289961-00

PATIENT
  Age: 58 Year
  Sex: Male

DRUGS (6)
  1. ZECLAR [Suspect]
     Indication: PULMONARY TUBERCULOSIS
     Route: 048
     Dates: start: 20041230
  2. ETHAMBUTOL HCL [Suspect]
     Indication: PULMONARY TUBERCULOSIS
     Route: 048
     Dates: start: 20040925, end: 20050104
  3. RIFABUTINE [Suspect]
     Indication: PULMONARY TUBERCULOSIS
     Route: 048
     Dates: start: 20041231
  4. MOXIFLOXACIN [Concomitant]
     Indication: TUBERCULOSIS
     Route: 048
  5. ISONIAZID [Concomitant]
     Indication: TUBERCULOSIS
     Route: 048
     Dates: start: 20040925
  6. RUFINAMIDE [Concomitant]
     Indication: TUBERCULOSIS
     Route: 048
     Dates: start: 20040925

REACTIONS (2)
  - NEUROTOXICITY [None]
  - OPTIC NEURITIS [None]
